FAERS Safety Report 4925849-8 (Version None)
Quarter: 2006Q1

REPORT INFORMATION
  Report Type: 
  Country: None (occurrence: None)
  Receive Date: 20060228
  Receipt Date: 20050331
  Transmission Date: 20060701
  Serious: No
  Sender: FDA-Public Use
  Company Number: US-GLAXOSMITHKLINE-A0552170A

PATIENT
  Sex: Female

DRUGS (9)
  1. LAMICTAL [Suspect]
     Indication: CEREBRAL DISORDER
     Dosage: 200MG PER DAY
     Route: 048
  2. VITAMIN B6 [Concomitant]
  3. VITAMIN B COMPLEX CAP [Concomitant]
  4. ASCORBIC ACID [Concomitant]
  5. VITAMIN E [Concomitant]
  6. VITAMIN E [Concomitant]
  7. CALCIUM GLUCONATE [Concomitant]
  8. MAGNESIUM [Concomitant]
  9. COENZYME Q10 [Concomitant]

REACTIONS (5)
  - ANXIETY [None]
  - ERYTHEMA [None]
  - INSOMNIA [None]
  - IRRITABILITY [None]
  - PRURITUS [None]
